FAERS Safety Report 22607209 (Version 1)
Quarter: 2023Q2

REPORT INFORMATION
  Report Type: Spontaneous
  Country: JP (occurrence: JP)
  Receive Date: 20230615
  Receipt Date: 20230615
  Transmission Date: 20230722
  Serious: Yes (Hospitalization)
  Sender: FDA-Public Use
  Company Number: JP-KYOWAKIRIN-2023AKK008537

PATIENT
  Age: 43 Year
  Sex: Female

DRUGS (8)
  1. PEGFILGRASTIM [Suspect]
     Active Substance: PEGFILGRASTIM
     Indication: Colony stimulating factor therapy
     Dosage: 3.6 MG
     Route: 058
     Dates: start: 20230426, end: 20230426
  2. PEGFILGRASTIM [Suspect]
     Active Substance: PEGFILGRASTIM
     Dosage: 3.6 MG
     Route: 058
     Dates: start: 20230517
  3. DOCETAXEL [Concomitant]
     Active Substance: DOCETAXEL
     Indication: Breast cancer
     Dosage: UNK, (THE FIRST COURSE)
     Route: 065
     Dates: start: 20230403
  4. DOCETAXEL [Concomitant]
     Active Substance: DOCETAXEL
     Dosage: UNK, (THE SECOND COURSE)
     Route: 065
     Dates: start: 20230424
  5. DOCETAXEL [Concomitant]
     Active Substance: DOCETAXEL
     Dosage: UNK, (THE THIRD COURSE)
     Route: 065
     Dates: start: 20230515
  6. CYCLOPHOSPHAMIDE [Concomitant]
     Active Substance: CYCLOPHOSPHAMIDE
     Indication: Breast cancer
     Dosage: UNK, (THE FIRST COURSE)
     Route: 065
     Dates: start: 20230403
  7. CYCLOPHOSPHAMIDE [Concomitant]
     Active Substance: CYCLOPHOSPHAMIDE
     Dosage: UNK, (THE SECOND COURSE)
     Route: 065
     Dates: start: 20230424
  8. CYCLOPHOSPHAMIDE [Concomitant]
     Active Substance: CYCLOPHOSPHAMIDE
     Dosage: UNK, (THE THIRD COURSE)
     Route: 065
     Dates: start: 20230515

REACTIONS (2)
  - Urticaria [Not Recovered/Not Resolved]
  - Pyrexia [Not Recovered/Not Resolved]

NARRATIVE: CASE EVENT DATE: 20230522
